FAERS Safety Report 6789756-0 (Version None)
Quarter: 2010Q2

REPORT INFORMATION
  Report Type: 
  Country: None (occurrence: None)
  Receive Date: 20100624
  Receipt Date: 20100615
  Transmission Date: 20101027
  Serious: Yes (Hospitalization)
  Sender: FDA-Public Use
  Company Number: FR-PFIZER INC-2010068264

PATIENT
  Age: 60 Year
  Sex: Female

DRUGS (16)
  1. NEURONTIN [Suspect]
     Dosage: 900 MG, UNK
     Route: 048
     Dates: start: 20100509, end: 20100509
  2. NEURONTIN [Suspect]
     Dosage: 600 MG, UNK
     Route: 048
     Dates: start: 20100510, end: 20100510
  3. AUGMENTIN '125' [Suspect]
     Dosage: 4 G, UNK
     Route: 042
     Dates: start: 20100510, end: 20100510
  4. PROPOFOL [Suspect]
     Indication: ANAESTHESIA
     Dosage: 3120 MG, UNK
     Route: 042
     Dates: start: 20100510, end: 20100510
  5. ATRACURIUM BESYLATE [Suspect]
     Indication: ANAESTHESIA
     Dosage: 75 MG, UNK
     Route: 042
     Dates: start: 20100510, end: 20100510
  6. ULTIVA [Suspect]
     Indication: ANAESTHESIA
     Dosage: 2.27 MG
     Route: 042
     Dates: start: 20100510, end: 20100510
  7. KETAMINE HCL [Suspect]
     Indication: ANAESTHESIA
     Dosage: UNK
     Route: 042
     Dates: start: 20100510, end: 20100510
  8. DROPERIDOL [Suspect]
     Indication: ANAESTHESIA
     Dosage: 1.25 MG DAILY
     Route: 042
     Dates: start: 20100510, end: 20100511
  9. POVIDONE-IODINE [Suspect]
     Dosage: UNK
     Route: 003
     Dates: start: 20100509, end: 20100510
  10. BETADINE GYNECOLOGICAL [Suspect]
     Dosage: UNK
     Route: 067
     Dates: start: 20100510, end: 20100510
  11. NORMACOL [Suspect]
     Dosage: UNK
     Route: 054
     Dates: start: 20100509, end: 20100509
  12. ATACAND [Concomitant]
     Dosage: 1 TABLET DAILY
  13. CACIT D3 [Concomitant]
     Dosage: UNK
  14. LOVENOX [Concomitant]
     Dosage: 0.4 ML, 1X/DAY
     Dates: start: 20100509, end: 20100510
  15. LACTATED RINGER'S [Concomitant]
     Dosage: 1.5 L
     Dates: start: 20100510, end: 20100510
  16. SERUM PHYSIOLOGICAL [Concomitant]
     Dosage: UNK
     Dates: start: 20100510, end: 20100510

REACTIONS (3)
  - OLIGURIA [None]
  - POST PROCEDURAL HAEMATURIA [None]
  - RENAL FAILURE ACUTE [None]
